FAERS Safety Report 18615096 (Version 2)
Quarter: 2020Q4

REPORT INFORMATION
  Report Type: Other
  Country: JP (occurrence: JP)
  Receive Date: 20201215
  Receipt Date: 20201222
  Transmission Date: 20210114
  Serious: Yes (Death, Other)
  Sender: FDA-Public Use
  Company Number: JP-ROCHE-2732627

PATIENT
  Age: 77 Year
  Sex: Male
  Weight: 60 kg

DRUGS (3)
  1. CELLCEPT [Suspect]
     Active Substance: MYCOPHENOLATE MOFETIL\MYCOPHENOLATE MOFETIL HYDROCHLORIDE
     Indication: LIVER DISORDER
     Dosage: DOSAGE IS UNCERTAIN.
     Route: 048
     Dates: start: 201906, end: 2019
  2. PREDNISOLONE. [Concomitant]
     Active Substance: PREDNISOLONE
     Indication: LIVER DISORDER
     Dosage: DOSAGE IS UNCERTAIN.
     Route: 065
     Dates: start: 201906, end: 2019
  3. AZATHIOPRINE. [Concomitant]
     Active Substance: AZATHIOPRINE
     Indication: LIVER DISORDER
     Dosage: DOSAGE IS UNCERTAIN.
     Route: 065
     Dates: start: 201906, end: 2019

REACTIONS (8)
  - Respiratory failure [Fatal]
  - Subdural haematoma [Unknown]
  - Cytomegalovirus test positive [Recovering/Resolving]
  - Intentional product use issue [Unknown]
  - Off label use [Unknown]
  - Cerebral infarction [Unknown]
  - Blood pressure decreased [Fatal]
  - Pneumonia [Unknown]

NARRATIVE: CASE EVENT DATE: 201907
